FAERS Safety Report 5333996-4 (Version None)
Quarter: 2007Q2

REPORT INFORMATION
  Report Type: 
  Country: None (occurrence: None)
  Receive Date: 20070524
  Receipt Date: 20070514
  Transmission Date: 20071010
  Serious: Yes (Other)
  Sender: FDA-Public Use
  Company Number: US-PFIZER INC-2007039354

PATIENT
  Sex: Male
  Weight: 106.1 kg

DRUGS (5)
  1. GEODON [Suspect]
     Indication: DEPRESSION
     Dates: start: 20070401, end: 20070512
  2. ZOLOFT [Suspect]
     Indication: DEPRESSION
  3. ATENOLOL [Concomitant]
  4. BENAZEPRIL HYDROCHLORIDE [Concomitant]
  5. HYDROCHLOROTHIAZIDE [Concomitant]

REACTIONS (6)
  - DRUG INEFFECTIVE [None]
  - HYPOAESTHESIA [None]
  - INCREASED APPETITE [None]
  - OEDEMA PERIPHERAL [None]
  - PSYCHOTIC DISORDER [None]
  - SCIATIC NERVE INJURY [None]
